FAERS Safety Report 5480477-3 (Version None)
Quarter: 2007Q4

REPORT INFORMATION
  Report Type: 
  Country: None (occurrence: None)
  Receive Date: 20071009
  Receipt Date: 20070928
  Transmission Date: 20080405
  Serious: Yes (Other)
  Sender: FDA-Public Use
  Company Number: PH-BRISTOL-MYERS SQUIBB COMPANY-13930524

PATIENT
  Age: 68 Year
  Sex: Female

DRUGS (5)
  1. METFORMIN HCL [Suspect]
     Indication: TYPE 2 DIABETES MELLITUS
     Route: 048
     Dates: start: 20070723
  2. AMARYL [Suspect]
     Indication: TYPE 2 DIABETES MELLITUS
     Dosage: 2 MG TABLET
     Route: 048
     Dates: start: 20070723
  3. LANTUS [Suspect]
     Indication: TYPE 2 DIABETES MELLITUS
     Dosage: 6 IU FROM 30-AUG-07-ONGOING.
     Route: 058
     Dates: start: 20070827
  4. LOSARTAN POTASSIUM [Concomitant]
     Dates: start: 20060719
  5. SIMVASTATIN [Concomitant]
     Dates: start: 20061213

REACTIONS (1)
  - HYPOGLYCAEMIA [None]
